FAERS Safety Report 8493721-5 (Version None)
Quarter: 2012Q3

REPORT INFORMATION
  Report Type: 
  Country: None (occurrence: None)
  Receive Date: 20120706
  Receipt Date: 20120627
  Transmission Date: 20120928
  Serious: Yes (Other)
  Sender: FDA-Public Use
  Company Number: TW-ELI_LILLY_AND_COMPANY-TW201206001904

PATIENT
  Age: 35 Year
  Sex: Female

DRUGS (11)
  1. MYDRIACYL [Concomitant]
     Dosage: 1 DF, EACH EVENING
     Dates: start: 20111101
  2. IRBESARTAN [Concomitant]
     Dosage: 1 DF, QD
     Dates: start: 20111201
  3. BYETTA [Suspect]
     Dosage: 10 UG, UNK
     Dates: start: 20110903, end: 20120522
  4. METFORMIN HCL [Concomitant]
     Dosage: 2 DF, UNK
     Dates: start: 20110806
  5. BYETTA [Suspect]
     Indication: DIABETES MELLITUS
     Dosage: 5 UG, UNK
     Dates: start: 20110806, end: 20110902
  6. GLIBEN [Concomitant]
     Dosage: 2 DF, UNK
  7. GENTAMICIN [Concomitant]
     Dosage: 1 DF, QID
  8. AVASTIN [Concomitant]
  9. TIMOLO [Concomitant]
     Dosage: 1 DF, UNK
     Dates: start: 20111101
  10. BETAMETHASONE [Concomitant]
     Dosage: 1 DF, QID
     Dates: start: 20111101
  11. TRANEXAMIC ACID [Concomitant]
     Dosage: UNK
     Dates: start: 20120301

REACTIONS (5)
  - VITREOUS HAEMORRHAGE [None]
  - INTRAOCULAR PRESSURE INCREASED [None]
  - CATARACT [None]
  - NAUSEA [None]
  - EYE OPERATION [None]
